FAERS Safety Report 5141295-9 (Version None)
Quarter: 2006Q4

REPORT INFORMATION
  Report Type: 
  Country: None (occurrence: None)
  Receive Date: 20061101
  Receipt Date: 20061030
  Transmission Date: 20070319
  Serious: Yes (Death)
  Sender: FDA-Public Use
  Company Number: 2006AP05167

PATIENT
  Age: 71 Year
  Sex: Male

DRUGS (3)
  1. IRESSA [Suspect]
     Indication: LUNG NEOPLASM
     Route: 048
     Dates: start: 20060819, end: 20060822
  2. BONEFOS [Concomitant]
     Indication: METASTASES TO BONE
     Route: 065
  3. ACESODYNE [Concomitant]
     Indication: NEOPLASM MALIGNANT
     Route: 065

REACTIONS (2)
  - DEATH [None]
  - MEDICATION RESIDUE [None]
